FAERS Safety Report 7156435-X (Version None)
Quarter: 2010Q4

REPORT INFORMATION
  Report Type: 
  Country: None (occurrence: None)
  Receive Date: 20101214
  Receipt Date: 20101203
  Transmission Date: 20110411
  Serious: No
  Sender: FDA-Public Use
  Company Number: US-ROCHE-747401

PATIENT
  Sex: Female

DRUGS (3)
  1. ISOTRETINOIN [Suspect]
     Indication: ACNE
     Route: 065
     Dates: start: 20090207, end: 20090207
  2. ISOTRETINOIN [Suspect]
     Route: 065
     Dates: start: 20101001, end: 20101001
  3. ISOTRETINOIN [Suspect]
     Route: 065
     Dates: start: 20101118, end: 20101118

REACTIONS (2)
  - NO ADVERSE EVENT [None]
  - PREGNANCY [None]
